FAERS Safety Report 9146226 (Version 1)
Quarter: 2013Q1

REPORT INFORMATION
  Report Type: Spontaneous
  Country: US (occurrence: None)
  Receive Date: 20130227
  Receipt Date: 20130227
  Transmission Date: 20140127
  Serious: No
  Sender: FDA-Public Use
  Company Number: None

PATIENT
  Sex: Male
  Weight: 100 kg

DRUGS (1)
  1. POTASSIUM [Suspect]
     Indication: BLOOD POTASSIUM DECREASED
     Dates: start: 2005

REACTIONS (4)
  - Product contamination [None]
  - Product physical issue [None]
  - Product colour issue [None]
  - Product quality issue [None]
